FAERS Safety Report 10037414 (Version 1)
Quarter: 2014Q1

REPORT INFORMATION
  Report Type: Spontaneous
  Country: US (occurrence: None)
  Receive Date: 20140325
  Receipt Date: 20140325
  Transmission Date: 20141002
  Serious: Yes (Other)
  Sender: FDA-Public Use
  Company Number: None

PATIENT
  Age: 36 Year
  Sex: Male
  Weight: 143.79 kg

DRUGS (2)
  1. INVEGA SUSTENNA [Suspect]
     Route: 030
  2. PROZAC [Suspect]

REACTIONS (3)
  - Dizziness [None]
  - Gaze palsy [None]
  - Eye disorder [None]
